FAERS Safety Report 4686976-6 (Version None)
Quarter: 2005Q2

REPORT INFORMATION
  Report Type: 
  Country: None (occurrence: None)
  Receive Date: 20050606
  Receipt Date: 20050525
  Transmission Date: 20051028
  Serious: Yes (Hospitalization)
  Sender: FDA-Public Use
  Company Number: FR_050506492

PATIENT
  Age: 68 Year
  Sex: Female
  Weight: 57 kg

DRUGS (2)
  1. GEMZAR [Suspect]
     Indication: OVARIAN CANCER
     Dosage: 100 MG/M2/1 OTHER
     Route: 050
     Dates: start: 20040202, end: 20040621
  2. ELOXATIN [Concomitant]

REACTIONS (6)
  - APHASIA [None]
  - CEREBRAL HAEMATOMA [None]
  - ELECTROENCEPHALOGRAM ABNORMAL [None]
  - EPILEPSY [None]
  - HEMIPARESIS [None]
  - TRANSVERSE SINUS THROMBOSIS [None]
